FAERS Safety Report 8487628 (Version 5)
Quarter: 2013Q1

REPORT INFORMATION
  Report Type: Spontaneous
  Country: FR (occurrence: FR)
  Receive Date: 20120402
  Receipt Date: 20130204
  Transmission Date: 20140127
  Serious: Yes (Hospitalization)
  Sender: FDA-Public Use
  Company Number: FR-GLAXOSMITHKLINE-B0790619A

PATIENT
  Age: 13 None
  Sex: Male
  Weight: 76 kg

DRUGS (3)
  1. LAMICTAL [Suspect]
     Indication: PARTIAL SEIZURES
     Dosage: 500MG PER DAY
     Route: 048
  2. TRILEPTAL [Suspect]
     Indication: PARTIAL SEIZURES
     Dosage: 1500MG PER DAY
     Route: 048
     Dates: start: 2008, end: 20120706
  3. URBANYL [Suspect]
     Indication: PARTIAL SEIZURES
     Dosage: 10MG THREE TIMES PER DAY
     Route: 048

REACTIONS (13)
  - Cholestasis [Recovering/Resolving]
  - Cholangitis [Not Recovered/Not Resolved]
  - Alanine aminotransferase increased [Recovered/Resolved]
  - Blood alkaline phosphatase increased [Recovered/Resolved]
  - Gamma-glutamyltransferase increased [Recovering/Resolving]
  - Pyrexia [None]
  - Heart rate increased [None]
  - Respiratory rate increased [None]
  - Hemiparesis [None]
  - Dysphagia [None]
  - Consciousness fluctuating [None]
  - Renal failure [None]
  - Back pain [None]
